FAERS Safety Report 8886983 (Version 1)
Quarter: 2012Q4

REPORT INFORMATION
  Report Type: 
  Country: US (occurrence: US)
  Receive Date: 20121105
  Receipt Date: 20121105
  Transmission Date: 20130627
  Serious: Yes (Other)
  Sender: FDA-Public Use
  Company Number: US-ROCHE-1148797

PATIENT
  Sex: Female

DRUGS (5)
  1. SABRIL [Suspect]
     Indication: INFANTILE SPASMS
     Route: 048
     Dates: start: 20121006
  2. SABRIL [Suspect]
     Route: 048
     Dates: start: 20121008
  3. KLONOPIN [Suspect]
     Indication: PRODUCT USED FOR UNKNOWN INDICATION
     Route: 065
     Dates: start: 2012
  4. KEPPRA [Suspect]
     Indication: PRODUCT USED FOR UNKNOWN INDICATION
     Route: 065
     Dates: start: 2012
  5. TOPAMAX [Suspect]
     Indication: PRODUCT USED FOR UNKNOWN INDICATION
     Route: 065

REACTIONS (5)
  - Infantile spasms [Unknown]
  - Dyskinesia [Unknown]
  - Listless [Unknown]
  - Eating disorder symptom [Recovering/Resolving]
  - Hypotonia [Recovering/Resolving]
